FAERS Safety Report 25994219 (Version 1)
Quarter: 2025Q4

REPORT INFORMATION
  Report Type: Spontaneous
  Country: US (occurrence: US)
  Receive Date: 20251104
  Receipt Date: 20251104
  Transmission Date: 20260117
  Serious: Yes (Other)
  Sender: COOPERSURGICAL
  Company Number: US-COOPERSURGICAL, INC.-2025CPS007724

PATIENT
  Age: 39 Year
  Sex: Female
  Weight: 83.9 kg

DRUGS (1)
  1. PARAGARD T 380A [Suspect]
     Active Substance: COPPER
     Indication: Contraception
     Dosage: UNK
     Route: 015
     Dates: start: 20100312, end: 20200609

REACTIONS (20)
  - Surgery [Recovered/Resolved]
  - Device breakage [Recovered/Resolved]
  - Foreign body in reproductive tract [Recovered/Resolved]
  - Complication of device removal [Recovered/Resolved]
  - Emotional distress [Not Recovered/Not Resolved]
  - Anxiety [Not Recovered/Not Resolved]
  - Procedural pain [Recovered/Resolved]
  - Libido decreased [Unknown]
  - Vaginal discharge [Unknown]
  - Hyperhidrosis [Unknown]
  - Hot flush [Unknown]
  - Vaginal infection [Unknown]
  - Pain [Not Recovered/Not Resolved]
  - Menstruation irregular [Unknown]
  - Vulvovaginal discomfort [Unknown]
  - Pelvic pain [Unknown]
  - Muscle spasms [Unknown]
  - Hypomenorrhoea [Unknown]
  - Device use issue [Recovered/Resolved]
  - Off label use [Unknown]

NARRATIVE: CASE EVENT DATE: 20100301
